FAERS Safety Report 23517219 (Version 1)
Quarter: 2024Q1

REPORT INFORMATION
  Report Type: 
  Country: None (occurrence: None)
  Receive Date: 20240213
  Receipt Date: 20240213
  Transmission Date: 20240409
  Serious: No
  Sender: FDA-Public Use
  Company Number: DE-ROCHE-3506315

PATIENT

DRUGS (8)
  1. POLATUZUMAB VEDOTIN [Suspect]
     Active Substance: POLATUZUMAB VEDOTIN
     Dosage: 1.8 MG/KG ON DAY 1 OF EACH 21-DAY CYCLE FOR UP TO 3 CYCLES (AS PER PROTOCOL)
     Dates: start: 20240123, end: 20240123
  2. RITUXIMAB [Suspect]
     Active Substance: RITUXIMAB
     Dosage: 375 MG/M2 ON DAY 1 OF EACH 21-DAY CYCLE FOR UP TO 3 CYCLES
     Dates: start: 20240123, end: 20240123
  3. IFOSFAMIDE [Suspect]
     Active Substance: IFOSFAMIDE
     Dosage: 5000 MG/M2 WILL BE ADMINISTERED OVER A 24 HR PERIOD STARTING ON CYCLE DAY 2
     Dates: start: 20240124, end: 20240125
  4. CARBOPLATIN [Suspect]
     Active Substance: CARBOPLATIN
     Dosage: WILL BE ADMINISTERED ON CYCLE DAY 2
     Dates: start: 20240124, end: 20240124
  5. ETOPOSIDE [Suspect]
     Active Substance: ETOPOSIDE
     Dosage: 100 MG/M2 WILL BE ADMINISTERED ON CYCLE DAYS 1, 2 AND 3
     Dates: start: 20240123, end: 20240125
  6. OLMESARTAN [Concomitant]
     Active Substance: OLMESARTAN
  7. AMLODIPINE [Concomitant]
     Active Substance: AMLODIPINE BESYLATE
  8. HYDROCHLOROTHIAZIDE [Concomitant]
     Active Substance: HYDROCHLOROTHIAZIDE

REACTIONS (2)
  - Escherichia bacteraemia [None]
  - COVID-19 [None]

NARRATIVE: CASE EVENT DATE: 20240202
